FAERS Safety Report 15090415 (Version 1)
Quarter: 2018Q2

REPORT INFORMATION
  Report Type: Spontaneous
  Country: BR (occurrence: BR)
  Receive Date: 20180629
  Receipt Date: 20180629
  Transmission Date: 20180711
  Serious: Yes (Other)
  Sender: FDA-Public Use
  Company Number: BR-GLAXOSMITHKLINE-BR2018GSK111111

PATIENT
  Age: 3 Year
  Sex: Male
  Weight: 20.5 kg

DRUGS (1)
  1. ZINNAT [Suspect]
     Active Substance: CEFUROXIME AXETIL
     Indication: CHRONIC SINUSITIS
     Dosage: 6 ML, BID
     Route: 048

REACTIONS (8)
  - Product prescribing issue [Recovered/Resolved]
  - Haematemesis [Unknown]
  - Pyrexia [Unknown]
  - Discoloured vomit [Unknown]
  - Decreased appetite [Not Recovered/Not Resolved]
  - Abdominal discomfort [Unknown]
  - Flatulence [Unknown]
  - Prescribed overdose [Unknown]
